FAERS Safety Report 9305506 (Version 1)
Quarter: 2013Q2

REPORT INFORMATION
  Report Type: Report from Study
  Country: PR (occurrence: PR)
  Receive Date: 20130523
  Receipt Date: 20130523
  Transmission Date: 20140414
  Serious: Yes (Other)
  Sender: FDA-Public Use
  Company Number: PR-ABBOTT-13P-131-1083894-00

PATIENT
  Sex: 0
  Weight: 57.2 kg

DRUGS (2)
  1. HUMIRA [Suspect]
     Indication: CROHN^S DISEASE
     Route: 058
     Dates: start: 201211, end: 201211
  2. HUMIRA [Suspect]
     Route: 058
     Dates: start: 201212, end: 20130328

REACTIONS (5)
  - Enterovesical fistula [Recovering/Resolving]
  - Enterocolonic fistula [Recovering/Resolving]
  - Ureteric obstruction [Not Recovered/Not Resolved]
  - Abscess intestinal [Recovering/Resolving]
  - Haemoglobin decreased [Recovering/Resolving]
